FAERS Safety Report 20331570 (Version 1)
Quarter: 2022Q1

REPORT INFORMATION
  Report Type: Spontaneous
  Country: US (occurrence: None)
  Receive Date: 20220112
  Receipt Date: 20220112
  Transmission Date: 20220424
  Serious: No
  Sender: FDA-Public Use
  Company Number: None

PATIENT
  Age: 74 Year
  Sex: Female

DRUGS (1)
  1. CAPECITABINE [Suspect]
     Active Substance: CAPECITABINE
     Indication: Colon cancer
     Dosage: FREQUENCY : TWICE A DAY;?
     Route: 048
     Dates: start: 2017

REACTIONS (6)
  - Palmar-plantar erythrodysaesthesia syndrome [None]
  - Deafness [None]
  - Tinnitus [None]
  - Cognitive disorder [None]
  - Glomerular filtration rate decreased [None]
  - Renal impairment [None]

NARRATIVE: CASE EVENT DATE: 20211123
